FAERS Safety Report 6708503-1 (Version None)
Quarter: 2010Q2

REPORT INFORMATION
  Report Type: 
  Country: None (occurrence: None)
  Receive Date: 20100503
  Receipt Date: 20090702
  Transmission Date: 20101027
  Serious: No
  Sender: FDA-Public Use
  Company Number: US-ASTRAZENECA-2009UW18469

PATIENT
  Age: 52 Year
  Sex: Female
  Weight: 58.5 kg

DRUGS (2)
  1. NEXIUM [Suspect]
     Route: 048
  2. THYROID TAB [Concomitant]

REACTIONS (2)
  - PALPITATIONS [None]
  - SWEAT GLAND DISORDER [None]
